FAERS Safety Report 9932677 (Version 1)
Quarter: 2014Q1

REPORT INFORMATION
  Report Type: Spontaneous
  Country: US (occurrence: US)
  Receive Date: 20140228
  Receipt Date: 20140228
  Transmission Date: 20141002
  Serious: No
  Sender: FDA-Public Use
  Company Number: US-GLAXOSMITHKLINE-A1020975A

PATIENT
  Age: 45 Year
  Sex: Female

DRUGS (16)
  1. IMITREX [Suspect]
     Indication: PRODUCT USED FOR UNKNOWN INDICATION
     Route: 065
  2. B COMPLEX [Concomitant]
  3. CALCIUM + VITAMIN D [Concomitant]
  4. POLYSACCHARIDE-IRON COMPLEX [Concomitant]
  5. WELLBUTRIN XL [Concomitant]
  6. PROZAC [Concomitant]
  7. VERAMYST [Concomitant]
  8. NAPROXEN [Concomitant]
  9. PRAVACHOL [Concomitant]
  10. ATIVAN [Concomitant]
  11. MULTIVITAMIN [Concomitant]
  12. METROGEL [Concomitant]
  13. RELPAX [Concomitant]
  14. LUTERA [Concomitant]
  15. TOPAMAX [Concomitant]
  16. SLOW-MAG [Concomitant]

REACTIONS (1)
  - Urticaria [Recovered/Resolved]
